FAERS Safety Report 14606020 (Version 1)
Quarter: 2018Q1

REPORT INFORMATION
  Report Type: Spontaneous
  Country: AR (occurrence: AR)
  Receive Date: 20180307
  Receipt Date: 20180307
  Transmission Date: 20180509
  Serious: Yes (Death)
  Sender: FDA-Public Use
  Company Number: AR-ASTRAZENECA-2018SE25340

PATIENT
  Age: 19003 Day
  Sex: Female

DRUGS (1)
  1. LYNPARZA [Suspect]
     Active Substance: OLAPARIB
     Indication: OVARIAN CANCER
     Route: 048
     Dates: start: 20170915, end: 201712

REACTIONS (1)
  - Death [Fatal]

NARRATIVE: CASE EVENT DATE: 20171228
